FAERS Safety Report 25090503 (Version 3)
Quarter: 2025Q2

REPORT INFORMATION
  Report Type: Report from Study
  Country: CA (occurrence: US)
  Receive Date: 20250318
  Receipt Date: 20250402
  Transmission Date: 20250717
  Serious: Yes (Other)
  Sender: MYLAN
  Company Number: CA-MYLANLABS-2024M1080958

PATIENT
  Sex: Female

DRUGS (11)
  1. GLATIRAMER ACETATE [Suspect]
     Active Substance: GLATIRAMER ACETATE
     Indication: Relapsing-remitting multiple sclerosis
     Dosage: 20 MILLIGRAM, QD (ONCE DAILY)
  2. GLATIRAMER ACETATE [Suspect]
     Active Substance: GLATIRAMER ACETATE
     Indication: Multiple sclerosis
     Dosage: 20 MILLIGRAM, QD (ONCE DAILY)
     Dates: start: 20240906
  3. FLECAINIDE [Concomitant]
     Active Substance: FLECAINIDE
  4. DILTIAZEM [Concomitant]
     Active Substance: DILTIAZEM
  5. ZOPICLONE [Concomitant]
     Active Substance: ZOPICLONE
  6. VITAMIN D [Concomitant]
     Active Substance: VITAMIN D NOS
  7. OMEGA 3 [Concomitant]
     Active Substance: CAPSAICIN
  8. MAGNESIUM [Concomitant]
     Active Substance: MAGNESIUM
  9. CALCIUM [Concomitant]
     Active Substance: CALCIUM
  10. POTASSIUM [Concomitant]
     Active Substance: POTASSIUM
  11. VITAMINS [Concomitant]
     Active Substance: VITAMINS

REACTIONS (10)
  - Injection related reaction [Unknown]
  - Injection site pain [Unknown]
  - Injection site erythema [Unknown]
  - Fatigue [Unknown]
  - Injection site warmth [Unknown]
  - Injection site induration [Unknown]
  - Injection site haemorrhage [Unknown]
  - Injection site mass [Unknown]
  - Muscle spasms [Unknown]
  - Product substitution issue [Unknown]
